FAERS Safety Report 8588673-3 (Version None)
Quarter: 2012Q3

REPORT INFORMATION
  Report Type: 
  Country: None (occurrence: None)
  Receive Date: 20120803
  Receipt Date: 20120803
  Transmission Date: 20120928
  Serious: No
  Sender: FDA-Public Use
  Company Number: None

PATIENT
  Sex: Female
  Weight: 93.5 kg

DRUGS (1)
  1. ERBITUX [Suspect]
     Dosage: 510 MG

REACTIONS (1)
  - LYMPHOCYTE COUNT DECREASED [None]
